FAERS Safety Report 15625611 (Version 1)
Quarter: 2018Q4

REPORT INFORMATION
  Report Type: Spontaneous
  Country: US (occurrence: US)
  Receive Date: 20181116
  Receipt Date: 20181116
  Transmission Date: 20190205
  Serious: Yes (Hospitalization)
  Sender: FDA-Public Use
  Company Number: PHHY2018US152061

PATIENT
  Age: 17 Year
  Sex: Female

DRUGS (1)
  1. ACETAMINOPHEN. [Suspect]
     Active Substance: ACETAMINOPHEN
     Indication: DYSMENORRHOEA
     Dosage: 25 (500 MG) DF, UNK
     Route: 065

REACTIONS (9)
  - Abdominal pain [Unknown]
  - Prothrombin time ratio increased [Unknown]
  - Syncope [Unknown]
  - Anaemia [Unknown]
  - Nausea [Unknown]
  - Transaminases increased [Unknown]
  - Glucose-6-phosphate dehydrogenase deficiency [Unknown]
  - Vomiting [Unknown]
  - Bilirubin conjugated increased [Unknown]
